FAERS Safety Report 6240110-X (Version None)
Quarter: 2009Q2

REPORT INFORMATION
  Report Type: 
  Country: None (occurrence: None)
  Receive Date: 20090623
  Receipt Date: 20090610
  Transmission Date: 20091009
  Serious: Yes (Other)
  Sender: FDA-Public Use
  Company Number: GR-JNJFOC-20090606717

PATIENT
  Age: 36 Year
  Sex: Female

DRUGS (6)
  1. HALOPERIDOL [Suspect]
     Indication: PSYCHOTIC DISORDER
     Route: 065
  2. RISPERIDONE [Suspect]
     Route: 065
  3. RISPERIDONE [Suspect]
     Indication: PSYCHOTIC DISORDER
     Route: 065
  4. OXCARBAZEPINE [Concomitant]
     Indication: EPILEPSY
     Route: 065
  5. TOPIRAMATE [Concomitant]
     Indication: EPILEPSY
     Route: 065
  6. LEVETIRACETAM [Concomitant]
     Indication: EPILEPSY
     Route: 065

REACTIONS (2)
  - DRUG RESISTANCE [None]
  - PSYCHOTIC DISORDER [None]
